FAERS Safety Report 5962534-8 (Version None)
Quarter: 2008Q4

REPORT INFORMATION
  Report Type: 
  Country: None (occurrence: None)
  Receive Date: 20081121
  Receipt Date: 20081112
  Transmission Date: 20090506
  Serious: Yes (Hospitalization, Other)
  Sender: FDA-Public Use
  Company Number: GR-PFIZER INC-2008095481

PATIENT
  Age: 75 Year
  Sex: Male
  Weight: 70 kg

DRUGS (4)
  1. SUTENT [Suspect]
     Indication: RENAL CANCER
     Route: 048
     Dates: start: 20080920, end: 20080927
  2. ADALAT CC [Concomitant]
     Dosage: TEXT:60 (UNITS UNSPECIFIED)
  3. FISIOTENS [Concomitant]
     Dosage: TEXT:0.2 (UNITS UNSPECIFIED)
  4. LASIX [Concomitant]
     Dosage: TEXT:40 (UNITS UNSPECIFIED)

REACTIONS (1)
  - HAEMORRHAGIC ASCITES [None]
